FAERS Safety Report 20547028 (Version 1)
Quarter: 2022Q1

REPORT INFORMATION
  Report Type: Spontaneous
  Country: AR (occurrence: AR)
  Receive Date: 20220303
  Receipt Date: 20220303
  Transmission Date: 20220423
  Serious: Yes (Disabling, Other)
  Sender: FDA-Public Use
  Company Number: AR-PFIZER INC-202200313761

PATIENT
  Age: 80 Year
  Sex: Female

DRUGS (1)
  1. SUTENT [Suspect]
     Active Substance: SUNITINIB MALATE
     Indication: Renal cancer
     Dosage: 37.5 MG, EVERY 45 DAYS (SCHEME 4/2 REST)
     Dates: start: 20210603

REACTIONS (2)
  - Knee arthroplasty [Not Recovered/Not Resolved]
  - Gait inability [Not Recovered/Not Resolved]
